FAERS Safety Report 7112689-7 (Version None)
Quarter: 2010Q4

REPORT INFORMATION
  Report Type: 
  Country: None (occurrence: None)
  Receive Date: 20101119
  Receipt Date: 20101108
  Transmission Date: 20110411
  Serious: Yes (Hospitalization, Disabling)
  Sender: FDA-Public Use
  Company Number: PHHY2010RU75349

PATIENT
  Sex: Female

DRUGS (1)
  1. ACLASTA [Suspect]
     Dosage: 5 MG
     Route: 042
     Dates: start: 20100923

REACTIONS (3)
  - FEMORAL NECK FRACTURE [None]
  - FRACTURE DISPLACEMENT [None]
  - HIP ARTHROPLASTY [None]
